FAERS Safety Report 7267142-7 (Version None)
Quarter: 2011Q1

REPORT INFORMATION
  Report Type: 
  Country: None (occurrence: None)
  Receive Date: 20110201
  Receipt Date: 20110118
  Transmission Date: 20110831
  Serious: Yes (Hospitalization)
  Sender: FDA-Public Use
  Company Number: DE-RANBAXY-2011RR-41183

PATIENT
  Age: 75 Year
  Sex: Male
  Weight: 76 kg

DRUGS (3)
  1. AMOXICILLIN [Suspect]
     Indication: HELICOBACTER GASTRITIS
     Dosage: 1000 MG, BID
     Route: 048
     Dates: start: 20101213, end: 20101227
  2. KLACID [Suspect]
     Indication: HELICOBACTER GASTRITIS
     Dosage: 500 MG, BID
     Route: 048
     Dates: start: 20101213, end: 20101227
  3. PANTOZOL 40 [Concomitant]
     Indication: HELICOBACTER GASTRITIS
     Dosage: 40 MG, BID
     Route: 048
     Dates: start: 20101213

REACTIONS (1)
  - LIVER DISORDER [None]
